FAERS Safety Report 12214481 (Version 1)
Quarter: 2016Q1

REPORT INFORMATION
  Report Type: Spontaneous
  Country: US (occurrence: US)
  Receive Date: 20160328
  Receipt Date: 20160328
  Transmission Date: 20160526
  Serious: Yes (Hospitalization)
  Sender: FDA-Public Use
  Company Number: US-JNJFOC-20160317192

PATIENT
  Sex: Female
  Weight: 55.34 kg

DRUGS (1)
  1. REMICADE [Suspect]
     Active Substance: INFLIXIMAB
     Indication: RHEUMATOID ARTHRITIS
     Dosage: ONCE EVERY TWO WEEKS THEN EVERY 4 WEEKS AND THEN EVERY 8 WEEKS
     Route: 042
     Dates: end: 20160301

REACTIONS (12)
  - Feeling abnormal [Unknown]
  - Hospitalisation [Unknown]
  - Skin burning sensation [Unknown]
  - Asthenia [Unknown]
  - Malaise [Unknown]
  - Lethargy [Unknown]
  - Vomiting [Unknown]
  - White blood cell count increased [Unknown]
  - Infusion related reaction [Unknown]
  - Viral infection [Unknown]
  - Contusion [Unknown]
  - Pallor [Unknown]
